FAERS Safety Report 17444450 (Version 1)
Quarter: 2020Q1

REPORT INFORMATION
  Report Type: Spontaneous
  Country: IT (occurrence: IT)
  Receive Date: 20200221
  Receipt Date: 20200221
  Transmission Date: 20200409
  Serious: Yes (Congenital Anomaly)
  Sender: FDA-Public Use
  Company Number: IT-UCBSA-2020006172

PATIENT

DRUGS (9)
  1. KEPPRA [Suspect]
     Active Substance: LEVETIRACETAM
     Indication: SEIZURE
     Dosage: UNKNOWN DOSE
     Route: 064
  2. TEGRETOL [Suspect]
     Active Substance: CARBAMAZEPINE
     Dosage: 1200 MG, DAILY
     Route: 064
  3. GARDENALE [PHENOBARBITAL] [Suspect]
     Active Substance: PHENOBARBITAL
     Dosage: 100MG DAILY
     Route: 064
  4. KEPPRA [Suspect]
     Active Substance: LEVETIRACETAM
     Dosage: 750 MILLIGRAM, DAILY
     Route: 064
  5. AUGMENTINE [AMOXICILLIN;CLAVULANIC ACID] [Concomitant]
     Active Substance: AMOXICILLIN\CLAVULANIC ACID
     Dosage: 875 MG/125MG FILM COATED TABLETS
  6. GARDENALE [PHENOBARBITAL] [Suspect]
     Active Substance: PHENOBARBITAL
     Indication: SEIZURE
     Dosage: UNKNOWN DOSE
     Route: 064
  7. AUGMENTINE [AMOXICILLIN;CLAVULANIC ACID] [Concomitant]
     Active Substance: AMOXICILLIN\CLAVULANIC ACID
     Indication: INFLUENZA LIKE ILLNESS
     Dosage: UNK
     Route: 064
     Dates: start: 20191012, end: 20191020
  8. AUGMENTINE [AMOXICILLIN;CLAVULANIC ACID] [Concomitant]
     Active Substance: AMOXICILLIN\CLAVULANIC ACID
     Dosage: UNK
     Route: 064
     Dates: start: 20191101, end: 20191105
  9. TEGRETOL [Suspect]
     Active Substance: CARBAMAZEPINE
     Indication: SEIZURE
     Dosage: UNKNOWN DOSE
     Route: 064

REACTIONS (4)
  - Renal hypertrophy [Unknown]
  - Renal cyst [Unknown]
  - Ultrasound kidney abnormal [Unknown]
  - Maternal exposure before pregnancy [Unknown]
